FAERS Safety Report 9709694 (Version 1)
Quarter: 2013Q4

REPORT INFORMATION
  Report Type: Report from Study
  Country: ES (occurrence: ES)
  Receive Date: 20131126
  Receipt Date: 20131126
  Transmission Date: 20140711
  Serious: Yes (Death)
  Sender: FDA-Public Use
  Company Number: ES-ROCHE-1309452

PATIENT
  Age: 54 Year
  Sex: Female

DRUGS (2)
  1. RITUXIMAB [Suspect]
     Indication: PRODUCT USED FOR UNKNOWN INDICATION
     Route: 065
  2. CIDOFOVIR [Concomitant]

REACTIONS (1)
  - Hepatic failure [Fatal]
